FAERS Safety Report 13266760 (Version 2)
Quarter: 2017Q2

REPORT INFORMATION
  Report Type: Spontaneous
  Country: US (occurrence: US)
  Receive Date: 20170224
  Receipt Date: 20170426
  Transmission Date: 20170830
  Serious: No
  Sender: FDA-Public Use
  Company Number: US-ASTRAZENECA-2017SE16785

PATIENT
  Age: 39 Year
  Sex: Male
  Weight: 140.6 kg

DRUGS (1)
  1. BYDUREON [Suspect]
     Active Substance: EXENATIDE
     Indication: WEIGHT DECREASED
     Route: 058
     Dates: start: 2015, end: 2015

REACTIONS (7)
  - Injection site necrosis [Recovered/Resolved]
  - Injection site mass [Recovered/Resolved]
  - Off label use [Recovered/Resolved]
  - Extremity necrosis [Recovered/Resolved]
  - Abdominal wall wound [Recovered/Resolved]
  - Injection site cyst [Recovered/Resolved]
  - Product use in unapproved indication [Recovered/Resolved]

NARRATIVE: CASE EVENT DATE: 2015
